FAERS Safety Report 6298244-X (Version None)
Quarter: 2009Q3

REPORT INFORMATION
  Report Type: 
  Country: None (occurrence: None)
  Receive Date: 20090805
  Receipt Date: 20090722
  Transmission Date: 20100115
  Serious: Yes (Death)
  Sender: FDA-Public Use
  Company Number: US-MYLANLABS-2009S1013100

PATIENT
  Age: 67 Year
  Sex: Male

DRUGS (2)
  1. PHENYTOIN SODIUM [Suspect]
     Route: 048
     Dates: start: 20070201, end: 20070323
  2. PHENYTOIN SODIUM [Suspect]
     Route: 048
     Dates: start: 20070325, end: 20070401

REACTIONS (3)
  - ASTHENIA [None]
  - CONFUSIONAL STATE [None]
  - TOXIC EPIDERMAL NECROLYSIS [None]
